FAERS Safety Report 8760841 (Version 1)
Quarter: 2012Q4

REPORT INFORMATION
  Report Type: Report from Study
  Country: US (occurrence: US)
  Receive Date: 20120830
  Receipt Date: 20120830
  Transmission Date: 20130627
  Serious: Yes (Hospitalization)
  Sender: FDA-Public Use
  Company Number: US-ABBOTT-12P-163-0970895-00

PATIENT
  Age: 40 Year
  Sex: Female

DRUGS (2)
  1. HUMIRA 40 MG/0.8 ML PEN [Suspect]
     Indication: CROHN^S DISEASE
  2. HUMIRA 40 MG/0.8 ML PEN [Suspect]

REACTIONS (25)
  - Blood pressure decreased [Unknown]
  - Pneumonia [Not Recovered/Not Resolved]
  - Pneumonia [Unknown]
  - Pneumonia [Unknown]
  - Influenza [Unknown]
  - Drug effect incomplete [Unknown]
  - Crohn^s disease [Unknown]
  - Abdominal pain upper [Unknown]
  - Diarrhoea [Unknown]
  - Pleuritic pain [Unknown]
  - Pleuritic pain [Unknown]
  - Staphylococcal infection [Unknown]
  - Nasal oedema [Unknown]
  - Fungal infection [Unknown]
  - Vulvovaginal discomfort [Unknown]
  - Vulvovaginal burning sensation [Unknown]
  - Vaginal odour [Unknown]
  - Vaginal discharge [Unknown]
  - Weight decreased [Unknown]
  - Crohn^s disease [Unknown]
  - Odynophagia [Unknown]
  - Hypophagia [Unknown]
  - Vaginal fistula [Unknown]
  - Female genital tract fistula [Unknown]
  - Alopecia [Unknown]
